FAERS Safety Report 21745162 (Version 1)
Quarter: 2022Q4

REPORT INFORMATION
  Report Type: Spontaneous
  Country: US (occurrence: None)
  Receive Date: 20221219
  Receipt Date: 20221219
  Transmission Date: 20230113
  Serious: Yes (Hospitalization)
  Sender: FDA-Public Use
  Company Number: US-ROCHE-3103172

PATIENT
  Age: 9 Year
  Sex: Male
  Weight: 20 kg

DRUGS (1)
  1. EVRYSDI [Suspect]
     Active Substance: RISDIPLAM
     Indication: Spinal muscular atrophy
     Dosage: 5 MG (6.6 ML) ?STRENGTH: 0.75MG/ML
     Route: 048

REACTIONS (1)
  - Toxic shock syndrome [Recovering/Resolving]
